FAERS Safety Report 19441122 (Version 1)
Quarter: 2021Q2

REPORT INFORMATION
  Report Type: Spontaneous
  Country: US (occurrence: US)
  Receive Date: 20210617
  Receipt Date: 20210617
  Transmission Date: 20210717
  Serious: Yes (Hospitalization)
  Sender: FDA-Public Use
  Company Number: None

PATIENT
  Age: 7 Year
  Sex: Female

DRUGS (5)
  1. ABDEK, LEVOCARNITIN, SULFATRIM, SMZ?TMP, SENNA, GABAPENTIN, BACLOFEN [Concomitant]
  2. IPRATROPIUM, LEVOTHYROXINE [Concomitant]
  3. BETHKIS [Suspect]
     Active Substance: TOBRAMYCIN
     Indication: BRONCHIECTASIS
     Route: 055
     Dates: start: 20210226
  4. FYCOMPA, CLONAZEPAM, METOCLOPRAM, FLUTICASONE, ONFI, CIPROFLOXACIN [Concomitant]
  5. VALPROIC ACID, SYMBICORT, PULMOZYME, PROBIOTIC, VITAMIN D3 [Concomitant]

REACTIONS (1)
  - Nasopharyngitis [None]

NARRATIVE: CASE EVENT DATE: 20210607
